FAERS Safety Report 9475533 (Version 1)
Quarter: 2013Q3

REPORT INFORMATION
  Report Type: Spontaneous
  Country: US (occurrence: None)
  Receive Date: 20130821
  Receipt Date: 20130821
  Transmission Date: 20140515
  Serious: Yes (Other)
  Sender: FDA-Public Use
  Company Number: DSU-2013-04279

PATIENT
  Age: 60 Year
  Sex: Female
  Weight: 78.47 kg

DRUGS (3)
  1. TRIBENZOR [Suspect]
     Indication: HYPERTENSION
     Route: 048
     Dates: start: 201306
  2. PRILOSEC (OMPERAZOLE) (OMEPRAZOLE) [Concomitant]
  3. XANAX (ALRAZOLAM (ALPRAZOLAM) [Concomitant]

REACTIONS (4)
  - Pain [None]
  - Nausea [None]
  - Vomiting [None]
  - Nephrolithiasis [None]
